FAERS Safety Report 5080800-8 (Version None)
Quarter: 2006Q3

REPORT INFORMATION
  Report Type: 
  Country: None (occurrence: None)
  Receive Date: 20060809
  Receipt Date: 20060725
  Transmission Date: 20061208
  Serious: No
  Sender: FDA-Public Use
  Company Number: CA025-06-0322

PATIENT
  Age: 51 Year
  Sex: Female

DRUGS (6)
  1. ABRAXANE [Suspect]
     Indication: BREAST CANCER METASTATIC
     Dosage: 149MG LAST DOSE; FIRST DOSE 150 MG (SCHEDULED FOR EVERY WEEK) INTRAVENOUS DRIP
     Route: 041
     Dates: start: 20050826
  2. VINORELBINE (VINORELBINE) (INJECTION FOR INFUSION) [Suspect]
     Indication: BREAST CANCER METASTATIC
     Dosage: 28 MG (28 MG, SCHEDULED FOR EVERY WEEK) INTRAVENOUS DRIP
     Route: 041
     Dates: start: 20050826
  3. HERCEPTIN [Suspect]
     Indication: BREAST CANCER METASTATIC
     Dosage: 146 MG -LAST DOSE; FIRST DOSE 148.2 MG INTRAVENOUS DRIP
     Route: 041
     Dates: start: 20050826
  4. G-CSF (GRANULOCYTE COLONY STIMULATING FACTOR) [Suspect]
  5. MULTIVITAMIN [Concomitant]
  6. RANITIDINE [Concomitant]

REACTIONS (4)
  - CRANIAL NEUROPATHY [None]
  - FACIAL NERVE DISORDER [None]
  - FACIAL PALSY [None]
  - NEUROTOXICITY [None]
